FAERS Safety Report 13191254 (Version 1)
Quarter: 2017Q1

REPORT INFORMATION
  Report Type: Spontaneous
  Country: US (occurrence: US)
  Receive Date: 20170206
  Receipt Date: 20170206
  Transmission Date: 20170428
  Serious: No
  Sender: FDA-Public Use
  Company Number: None

PATIENT
  Age: 25 Year
  Sex: Female
  Weight: 53.1 kg

DRUGS (1)
  1. MIRVASO [Suspect]
     Active Substance: BRIMONIDINE TARTRATE
     Indication: ROSACEA
     Dosage: QUANTITY:1 DISPENSE PEA SIZE;?
     Route: 061
     Dates: start: 20160301, end: 20160315

REACTIONS (3)
  - Burning sensation [None]
  - Rosacea [None]
  - Pain [None]

NARRATIVE: CASE EVENT DATE: 20160310
